FAERS Safety Report 24976908 (Version 1)
Quarter: 2025Q1

REPORT INFORMATION
  Report Type: Spontaneous
  Country: GB (occurrence: GB)
  Receive Date: 20250217
  Receipt Date: 20250217
  Transmission Date: 20250408
  Serious: Yes (Other)
  Sender: PFIZER
  Company Number: GB-MHRA-WEBRADR-202502122150331950-GQYWB

PATIENT
  Age: 53 Year
  Sex: Female
  Weight: 110 kg

DRUGS (2)
  1. DOXYCYCLINE [Suspect]
     Active Substance: DOXYCYCLINE
     Indication: Localised infection
     Route: 048
     Dates: start: 20250211, end: 20250211
  2. DOXYCYCLINE [Suspect]
     Active Substance: DOXYCYCLINE
     Route: 048
     Dates: start: 20250212

REACTIONS (2)
  - Hypoglycaemia [Not Recovered/Not Resolved]
  - Off label use [Unknown]

NARRATIVE: CASE EVENT DATE: 20250211
